FAERS Safety Report 5019199-1 (Version None)
Quarter: 2006Q2

REPORT INFORMATION
  Report Type: 
  Country: None (occurrence: None)
  Receive Date: 20060606
  Receipt Date: 20060213
  Transmission Date: 20061013
  Serious: Yes (Death)
  Sender: FDA-Public Use
  Company Number: JP-SANOFI-SYNTHELABO-A01200601258

PATIENT
  Sex: Male

DRUGS (6)
  1. ANTHROBIN P [Concomitant]
     Route: 042
     Dates: start: 20060203, end: 20060205
  2. DEXAMETHASONE SODIUM PHOSPHATE [Concomitant]
     Route: 042
     Dates: start: 20060124, end: 20060124
  3. RAMOSETRON HYDROCHLORIDE [Concomitant]
     Route: 042
     Dates: start: 20060124, end: 20060124
  4. CALCIUM LEVOFOLINATE [Suspect]
     Indication: RECTAL CANCER
     Dosage: 175MG/BODY=100.6MG/M2 AS INFUSION ON DAYS 1 AND 2
     Route: 042
     Dates: start: 20060124, end: 20060125
  5. FLUOROURACIL [Suspect]
     Indication: RECTAL CANCER
     Dosage: 700MG/BODY=402.3MG/M2 IN BOLUS THEN 1000MG/BODY=574.7MG/M2 AS CONTINUOUS INFUSION ON DAYS 1 AND 2
     Route: 042
     Dates: start: 20060124, end: 20060125
  6. OXALIPLATIN [Suspect]
     Indication: RECTAL CANCER
     Dosage: 150MG/BODY IN INFUSION ON DAY 1
     Route: 042
     Dates: start: 20060124, end: 20060124

REACTIONS (7)
  - CACHEXIA [None]
  - GENERAL PHYSICAL HEALTH DETERIORATION [None]
  - HAEMOGLOBIN DECREASED [None]
  - LEUKOPENIA [None]
  - MALAISE [None]
  - NEUTROPENIA [None]
  - THROMBOCYTOPENIA [None]
